FAERS Safety Report 21332853 (Version 1)
Quarter: 2022Q3

REPORT INFORMATION
  Report Type: Spontaneous
  Country: IL (occurrence: IL)
  Receive Date: 20220914
  Receipt Date: 20220914
  Transmission Date: 20221026
  Serious: No
  Sender: FDA-Public Use
  Company Number: IL-009507513-2209ISR001543

PATIENT
  Sex: Male

DRUGS (2)
  1. MOLNUPIRAVIR [Suspect]
     Active Substance: MOLNUPIRAVIR
     Dosage: 4 CAPSULES, ONE DAY
     Route: 048
     Dates: start: 2022, end: 2022
  2. MOLNUPIRAVIR [Suspect]
     Active Substance: MOLNUPIRAVIR
     Dosage: 4 CAPSULES, ON 3AM AND 3PM
     Route: 048
     Dates: start: 2022

REACTIONS (3)
  - Nausea [Recovering/Resolving]
  - Dizziness [Recovering/Resolving]
  - Product use issue [Unknown]

NARRATIVE: CASE EVENT DATE: 20220101
